FAERS Safety Report 10453476 (Version 4)
Quarter: 2014Q4

REPORT INFORMATION
  Report Type: Report from Study
  Country: GT (occurrence: GT)
  Receive Date: 20140915
  Receipt Date: 20141219
  Transmission Date: 20150528
  Serious: Yes (Other)
  Sender: FDA-Public Use
  Company Number: PHHY2014GT116807

PATIENT
  Sex: Female
  Weight: 54.42 kg

DRUGS (7)
  1. IBUPROFEN. [Concomitant]
     Active Substance: IBUPROFEN
     Indication: DYSMENORRHOEA
     Route: 065
  2. GILENYA [Suspect]
     Active Substance: FINGOLIMOD HYDROCHLORIDE
     Indication: MULTIPLE SCLEROSIS
     Dosage: 0.5 MG, QD
     Route: 048
     Dates: start: 201110
  3. LYRICA [Concomitant]
     Active Substance: PREGABALIN
     Indication: SEIZURE
     Dosage: 1 DF, QD
     Route: 065
  4. CLIANE [Concomitant]
     Active Substance: ETHINYL ESTRADIOL\NORETHINDRONE ACETATE
     Indication: PRODUCT USED FOR UNKNOWN INDICATION
     Route: 065
  5. IBUPROFEN. [Concomitant]
     Active Substance: IBUPROFEN
     Indication: SKIN BURNING SENSATION
  6. CLONAZEPAN [Concomitant]
     Active Substance: CLONAZEPAM
     Indication: PRODUCT USED FOR UNKNOWN INDICATION
     Dosage: 0.5 DF, QD
     Route: 065
  7. CONTROLIP (ETOFYLLINE CLOFIBRATE) [Concomitant]
     Indication: BLOOD CHOLESTEROL
     Dosage: 1 DF, QD
     Route: 065

REACTIONS (7)
  - Diplopia [Unknown]
  - Seizure [Unknown]
  - Muscular weakness [Unknown]
  - Dyspnoea [Unknown]
  - Sensory disturbance [Unknown]
  - Chest pain [Unknown]
  - Depression [Not Recovered/Not Resolved]
